FAERS Safety Report 22152883 (Version 13)
Quarter: 2025Q3

REPORT INFORMATION
  Report Type: Report from Study
  Country: CA (occurrence: CA)
  Receive Date: 20230329
  Receipt Date: 20250730
  Transmission Date: 20251021
  Serious: Yes (Other)
  Sender: TAKEDA
  Company Number: CA-TAKEDA-2023TUS030860

PATIENT
  Age: 69 Year
  Sex: Female

DRUGS (31)
  1. HUMAN IMMUNOGLOBULIN G [Suspect]
     Active Substance: HUMAN IMMUNOGLOBULIN G
     Indication: Primary immunodeficiency syndrome
     Dosage: 10 GRAM, 1/WEEK
     Dates: start: 20230313
  2. HUMAN IMMUNOGLOBULIN G [Suspect]
     Active Substance: HUMAN IMMUNOGLOBULIN G
     Dosage: UNK UNK, 1/WEEK
  3. HUMAN IMMUNOGLOBULIN G [Suspect]
     Active Substance: HUMAN IMMUNOGLOBULIN G
     Dosage: 12 GRAM, 1/WEEK
  4. HUMAN IMMUNOGLOBULIN G [Suspect]
     Active Substance: HUMAN IMMUNOGLOBULIN G
     Dosage: 12 GRAM, 1/WEEK
  5. HYQVIA [Suspect]
     Active Substance: HUMAN IMMUNOGLOBULIN G\HYALURONIDASE (HUMAN RECOMBINANT)
     Indication: Secondary immunodeficiency
     Dosage: 35 GRAM, Q3WEEKS
     Dates: start: 20241202
  6. HYQVIA [Suspect]
     Active Substance: HUMAN IMMUNOGLOBULIN G\HYALURONIDASE (HUMAN RECOMBINANT)
     Dosage: 35 GRAM, Q3WEEKS
  7. HYQVIA [Suspect]
     Active Substance: HUMAN IMMUNOGLOBULIN G\HYALURONIDASE (HUMAN RECOMBINANT)
     Dosage: 35 GRAM, Q3WEEKS
  8. HYQVIA [Suspect]
     Active Substance: HUMAN IMMUNOGLOBULIN G\HYALURONIDASE (HUMAN RECOMBINANT)
     Dosage: 35 GRAM, Q3WEEKS
  9. HYQVIA [Suspect]
     Active Substance: HUMAN IMMUNOGLOBULIN G\HYALURONIDASE (HUMAN RECOMBINANT)
  10. HYQVIA [Suspect]
     Active Substance: HUMAN IMMUNOGLOBULIN G\HYALURONIDASE (HUMAN RECOMBINANT)
     Dosage: 35 GRAM, Q3WEEKS
  11. HYQVIA [Suspect]
     Active Substance: HUMAN IMMUNOGLOBULIN G\HYALURONIDASE (HUMAN RECOMBINANT)
     Dosage: 35 GRAM, Q3WEEKS
  12. PREDNISONE [Concomitant]
     Active Substance: PREDNISONE
  13. GABAPENTIN [Concomitant]
     Active Substance: GABAPENTIN
  14. AMITRIPTYLINE [Concomitant]
     Active Substance: AMITRIPTYLINE
  15. EZETIMIBE [Concomitant]
     Active Substance: EZETIMIBE
  16. PLAQUENIL [Concomitant]
     Active Substance: HYDROXYCHLOROQUINE SULFATE
  17. CELEBREX [Concomitant]
     Active Substance: CELECOXIB
  18. PANTOPRAZOLE MAGNESIUM [Concomitant]
     Active Substance: PANTOPRAZOLE MAGNESIUM
  19. SYNTHROID [Concomitant]
     Active Substance: LEVOTHYROXINE SODIUM
  20. PROLIA [Concomitant]
     Active Substance: DENOSUMAB
  21. BREO ELLIPTA [Concomitant]
     Active Substance: FLUTICASONE FUROATE\VILANTEROL TRIFENATATE
  22. NORFLOXACIN [Concomitant]
     Active Substance: NORFLOXACIN
  23. VITAMIN D [Concomitant]
     Active Substance: VITAMIN D NOS
  24. CALCIUM [Concomitant]
     Active Substance: CALCIUM
  25. ASPIRIN [Concomitant]
     Active Substance: ASPIRIN
  26. HYDROCHLOROTHIAZIDE [Concomitant]
     Active Substance: HYDROCHLOROTHIAZIDE
  27. VENTOLIN [Concomitant]
     Active Substance: ALBUTEROL SULFATE
  28. RUXIENCE [Concomitant]
     Active Substance: RITUXIMAB-PVVR
  29. DIETARY SUPPLEMENT\HERBALS\MILK THISTLE [Concomitant]
     Active Substance: MILK THISTLE
  30. VITAMIN D3 [Concomitant]
     Active Substance: CHOLECALCIFEROL
  31. LUTEIN [Concomitant]
     Active Substance: LUTEIN

REACTIONS (27)
  - Musculoskeletal discomfort [Not Recovered/Not Resolved]
  - Diverticulitis [Unknown]
  - Arthralgia [Not Recovered/Not Resolved]
  - Nasopharyngitis [Unknown]
  - Obstruction [Unknown]
  - Weight decreased [Unknown]
  - Fluid retention [Unknown]
  - Inflammation [Unknown]
  - Procedural pain [Not Recovered/Not Resolved]
  - COVID-19 [Not Recovered/Not Resolved]
  - Pharyngitis streptococcal [Not Recovered/Not Resolved]
  - Blood immunoglobulin G decreased [Not Recovered/Not Resolved]
  - Poor venous access [Not Recovered/Not Resolved]
  - Inappropriate schedule of product administration [Unknown]
  - Injection site bruising [Not Recovered/Not Resolved]
  - Illness [Not Recovered/Not Resolved]
  - Product preparation issue [Unknown]
  - Arthritis [Unknown]
  - Viral upper respiratory tract infection [Unknown]
  - Peripheral swelling [Unknown]
  - Infusion site haemorrhage [Unknown]
  - Contusion [Unknown]
  - Abdominal distension [Unknown]
  - Cough [Unknown]
  - Blood pressure increased [Unknown]
  - Infusion site discomfort [Unknown]
  - Fatigue [Not Recovered/Not Resolved]

NARRATIVE: CASE EVENT DATE: 20230301
